FAERS Safety Report 8951027 (Version 17)
Quarter: 2017Q4

REPORT INFORMATION
  Report Type: Report from Study
  Country: CA (occurrence: CA)
  Receive Date: 20121207
  Receipt Date: 20171129
  Transmission Date: 20180321
  Serious: Yes (Other)
  Sender: FDA-Public Use
  Company Number: PHHY2012CA112400

PATIENT
  Age: 57 Year
  Sex: Female

DRUGS (5)
  1. GLEEVEC [Suspect]
     Active Substance: IMATINIB MESYLATE
     Indication: CHRONIC MYELOID LEUKAEMIA
     Dosage: 400 MG, QD
     Route: 048
     Dates: start: 20120325
  2. OMEGA 3 [Suspect]
     Active Substance: OMEGA-3 FATTY ACIDS
     Indication: ARTHRALGIA
  3. BENTOLIN [Suspect]
     Active Substance: ALBUTEROL
     Indication: COUGH
     Dosage: UNK UNK, QHS (NIGHT TIME)
     Route: 065
  4. ZYLOPRIM [Concomitant]
     Active Substance: ALLOPURINOL
     Indication: PRODUCT USED FOR UNKNOWN INDICATION
     Dosage: UNK
     Route: 065
  5. OMEGA 3 [Suspect]
     Active Substance: OMEGA-3 FATTY ACIDS
     Indication: BONE PAIN
     Route: 065

REACTIONS (32)
  - Lymphadenopathy [Recovered/Resolved]
  - Oesophageal pain [Unknown]
  - Chest discomfort [Not Recovered/Not Resolved]
  - Neuropathy peripheral [Unknown]
  - Headache [Unknown]
  - Incorrect dose administered [Unknown]
  - Swelling [Recovered/Resolved]
  - Gallbladder disorder [Unknown]
  - Neck pain [Unknown]
  - Nausea [Not Recovered/Not Resolved]
  - Asthenia [Unknown]
  - Muscle spasms [Not Recovered/Not Resolved]
  - Urticaria [Unknown]
  - Cough [Unknown]
  - Hair texture abnormal [Unknown]
  - Influenza [Unknown]
  - Joint swelling [Unknown]
  - Peripheral swelling [Unknown]
  - Nephrolithiasis [Unknown]
  - Infection [Unknown]
  - Sinusitis [Unknown]
  - Abdominal pain [Unknown]
  - Bone pain [Unknown]
  - Skull fracture [Unknown]
  - Abdominal tenderness [Unknown]
  - Contusion [Unknown]
  - Spider vein [Unknown]
  - Pain in extremity [Not Recovered/Not Resolved]
  - Arthralgia [Not Recovered/Not Resolved]
  - Flushing [Unknown]
  - Chest pain [Unknown]
  - Fall [Unknown]

NARRATIVE: CASE EVENT DATE: 201203
